FAERS Safety Report 8587515-X (Version None)
Quarter: 2012Q3

REPORT INFORMATION
  Report Type: 
  Country: None (occurrence: None)
  Receive Date: 20120810
  Receipt Date: 20120806
  Transmission Date: 20120928
  Serious: Yes (Other)
  Sender: FDA-Public Use
  Company Number: JP-VERTEX PHARMACEUTICALS INC.-AE-2012-009741

PATIENT
  Age: 65 Year
  Sex: Male

DRUGS (11)
  1. FEROTYM [Concomitant]
     Route: 048
  2. AMLODIPINE [Concomitant]
     Route: 048
  3. RIBAVIRIN [Concomitant]
     Route: 048
     Dates: start: 20120528, end: 20120617
  4. RIBAVIRIN [Concomitant]
     Route: 048
     Dates: start: 20120717
  5. EPADEL S [Concomitant]
     Route: 048
  6. LIVALO [Concomitant]
     Route: 048
  7. RIBAVIRIN [Concomitant]
     Indication: HEPATITIS C
     Route: 048
     Dates: start: 20120508, end: 20120527
  8. TELAVIC [Suspect]
     Indication: HEPATITIS C
     Route: 048
     Dates: start: 20120508, end: 20120730
  9. RIBAVIRIN [Concomitant]
     Route: 048
     Dates: start: 20120618, end: 20120716
  10. PEGINTERFERON ALFA-2B [Concomitant]
     Indication: HEPATITIS C
     Route: 058
     Dates: start: 20120508
  11. CLARITIN REDITABS [Concomitant]
     Route: 048

REACTIONS (3)
  - ANAEMIA [None]
  - RENAL DISORDER [None]
  - PLATELET COUNT DECREASED [None]
